FAERS Safety Report 8322609-5 (Version None)
Quarter: 2012Q2

REPORT INFORMATION
  Report Type: 
  Country: None (occurrence: None)
  Receive Date: 20120426
  Receipt Date: 20120412
  Transmission Date: 20120825
  Serious: Yes (Hospitalization)
  Sender: FDA-Public Use
  Company Number: JPI-P-020891

PATIENT
  Age: 41 Year
  Sex: Female
  Weight: 68.9467 kg

DRUGS (9)
  1. MODAFINIL [Concomitant]
  2. XYREM [Suspect]
     Indication: NARCOLEPSY
     Dosage: (TOTAL DAILY DOS: 6 GM),ORAL ; 3 GM (3 GM,1 IN 1 D),ORAL
     Route: 048
     Dates: start: 20120118, end: 20120301
  3. XYREM [Suspect]
     Indication: NARCOLEPSY
     Dosage: (TOTAL DAILY DOS: 6 GM),ORAL ; 3 GM (3 GM,1 IN 1 D),ORAL
     Route: 048
     Dates: start: 20120101, end: 20120101
  4. TOLTERODINE TARTRATE [Concomitant]
  5. DULOXETINE HYDROCHLORIDE [Concomitant]
  6. CALCIUM [Concomitant]
  7. ASCORBIC ACID [Concomitant]
  8. IRON [Concomitant]
  9. LEVOTHYROXINE SODIUM [Concomitant]

REACTIONS (9)
  - HEADACHE [None]
  - EPISTAXIS [None]
  - IRRITABILITY [None]
  - EYELID OEDEMA [None]
  - OEDEMA PERIPHERAL [None]
  - SWELLING FACE [None]
  - NAUSEA [None]
  - CHOLECYSTECTOMY [None]
  - DIZZINESS [None]
